FAERS Safety Report 9845169 (Version 1)
Quarter: 2014Q1

REPORT INFORMATION
  Report Type: Spontaneous
  Country: US (occurrence: None)
  Receive Date: 20140122
  Receipt Date: 20140122
  Transmission Date: 20141002
  Serious: Yes (Other)
  Sender: FDA-Public Use
  Company Number: 2122301

PATIENT
  Age: 52 Year
  Sex: Female

DRUGS (2)
  1. DOCETAXEL [Suspect]
     Indication: UTERINE LEIOMYOSARCOMA
  2. GEMCITABINE HYDROCHLORIDE [Suspect]
     Indication: UTERINE LEIOMYOSARCOMA

REACTIONS (1)
  - Pneumothorax [None]
